FAERS Safety Report 14110810 (Version 2)
Quarter: 2017Q4

REPORT INFORMATION
  Report Type: Spontaneous
  Country: US (occurrence: US)
  Receive Date: 20171020
  Receipt Date: 20171102
  Transmission Date: 20180321
  Serious: Yes (Disabling)
  Sender: FDA-Public Use
  Company Number: US-HORIZON-PEN-0455-2017

PATIENT
  Age: 48 Year
  Sex: Female

DRUGS (9)
  1. LEVOTHYROXINE. [Concomitant]
     Active Substance: LEVOTHYROXINE
  2. CONTRAVE [Concomitant]
     Active Substance: BUPROPION HYDROCHLORIDE\NALTREXONE HYDROCHLORIDE
  3. PROAIR HFA [Concomitant]
     Active Substance: ALBUTEROL SULFATE
  4. SINGULAIR [Concomitant]
     Active Substance: MONTELUKAST SODIUM
  5. AMLODIPINE [Concomitant]
     Active Substance: AMLODIPINE BESYLATE
  6. PREDNISONE. [Concomitant]
     Active Substance: PREDNISONE
  7. PENNSAID [Suspect]
     Active Substance: DICLOFENAC SODIUM
     Indication: TENDONITIS
     Dosage: 1 SAMPLE PACKET BID
     Route: 061
     Dates: start: 2017, end: 2017
  8. PRAVASTATIN. [Concomitant]
     Active Substance: PRAVASTATIN
  9. CALAMINE [Concomitant]
     Active Substance: CALAMINE\FERRIC OXIDE RED\ZINC OXIDE
     Route: 061

REACTIONS (3)
  - Pruritus generalised [Not Recovered/Not Resolved]
  - Off label use [Unknown]
  - Urticaria [Not Recovered/Not Resolved]

NARRATIVE: CASE EVENT DATE: 2017
